FAERS Safety Report 9276462 (Version 2)
Quarter: 2013Q3

REPORT INFORMATION
  Report Type: Spontaneous
  Country: US (occurrence: US)
  Receive Date: 20130507
  Receipt Date: 20130710
  Transmission Date: 20140515
  Serious: Yes (Death, Life-Threatening, Hospitalization, Other)
  Sender: FDA-Public Use
  Company Number: US-ELI_LILLY_AND_COMPANY-US201305001088

PATIENT
  Age: 76 Year
  Sex: Male
  Weight: 80 kg

DRUGS (7)
  1. EFFIENT [Suspect]
     Indication: STENT PLACEMENT
     Dosage: 10 MG, QD
     Route: 048
     Dates: start: 20130105, end: 20130206
  2. ASPIRIN [Concomitant]
     Indication: STENT PLACEMENT
     Dosage: 81 MG, QD
     Route: 048
     Dates: start: 20121227, end: 20130205
  3. ATENOLOL [Concomitant]
     Dosage: 50 MG, BID
  4. OMEPRAZOLE [Concomitant]
     Dosage: 20 MG, QD
  5. SIMVASTATIN [Concomitant]
     Dosage: 40 MG, QD
  6. TRAZODONE [Concomitant]
     Dosage: 100 MG, EACH EVENING
  7. NITROGLYCERINE [Concomitant]
     Dosage: UNK, PRN
     Route: 060

REACTIONS (5)
  - Brain oedema [Fatal]
  - Haemorrhage intracranial [Fatal]
  - Subdural haemorrhage [Fatal]
  - Loss of consciousness [Unknown]
  - Malaise [Unknown]
